FAERS Safety Report 12359635 (Version 6)
Quarter: 2019Q2

REPORT INFORMATION
  Report Type: Spontaneous
  Country: US (occurrence: US)
  Receive Date: 20160512
  Receipt Date: 20190525
  Transmission Date: 20190711
  Serious: Yes (Hospitalization, Other)
  Sender: FDA-Public Use
  Company Number: US-TAKEDA-2016MPI003772

PATIENT
  Age: 79 Year
  Sex: Male

DRUGS (4)
  1. NINLARO [Suspect]
     Active Substance: IXAZOMIB CITRATE
     Indication: PLASMA CELL MYELOMA
     Dosage: 3 MILLIGRAM
     Route: 048
     Dates: start: 201604
  2. NINLARO [Suspect]
     Active Substance: IXAZOMIB CITRATE
     Dosage: 2.3 MILLIGRAM
     Route: 048
  3. DEXAMETHASONE. [Suspect]
     Active Substance: DEXAMETHASONE
     Indication: PRODUCT USED FOR UNKNOWN INDICATION
     Dosage: UNK
     Route: 065
  4. REVLIMID [Suspect]
     Active Substance: LENALIDOMIDE
     Indication: PRODUCT USED FOR UNKNOWN INDICATION
     Dosage: UNK
     Route: 065

REACTIONS (5)
  - White blood cell count increased [Unknown]
  - Fatigue [Unknown]
  - Infection [Unknown]
  - Plasma cell myeloma [Unknown]
  - Full blood count decreased [Unknown]

NARRATIVE: CASE EVENT DATE: 20160428
